FAERS Safety Report 9019607 (Version 1)
Quarter: 2013Q1

REPORT INFORMATION
  Report Type: Spontaneous
  Country: US (occurrence: US)
  Receive Date: 20130118
  Receipt Date: 20130118
  Transmission Date: 20140127
  Serious: Yes (Death)
  Sender: FDA-Public Use
  Company Number: US-SHIONOGI, INC-2013000086

PATIENT
  Age: 31 Year
  Sex: Male

DRUGS (6)
  1. NAPROXEN [Suspect]
     Dosage: UNK
  2. OXYCODONE HCL [Suspect]
     Dosage: UNK
  3. ETHANOL [Suspect]
     Dosage: UNK
  4. LIDOCAINE [Suspect]
     Dosage: UNK
  5. MEPROBAMATE [Suspect]
     Dosage: UNK
  6. HYDROXYZINE HCL [Suspect]
     Dosage: UNK

REACTIONS (2)
  - Cardio-respiratory arrest [Fatal]
  - Substance abuse [Fatal]
